FAERS Safety Report 14075959 (Version 1)
Quarter: 2017Q4

REPORT INFORMATION
  Report Type: Spontaneous
  Country: US (occurrence: US)
  Receive Date: 20171010
  Receipt Date: 20171010
  Transmission Date: 20180321
  Serious: No
  Sender: FDA-Public Use
  Company Number: US-MYLANLABS-2017M1002168

PATIENT
  Sex: Male
  Weight: 73.92 kg

DRUGS (2)
  1. CLONAZEPAM TABLETS USP [Suspect]
     Active Substance: CLONAZEPAM
     Indication: CHEST DISCOMFORT
  2. CLONAZEPAM TABLETS USP [Suspect]
     Active Substance: CLONAZEPAM
     Indication: ANXIETY
     Dosage: 0.5 MG, BID, ONE TABLET WITH BREAKFAST ONE WITH DINNER
     Route: 048

REACTIONS (5)
  - Muscle spasms [Unknown]
  - Disinhibition [Unknown]
  - Anxiety [Unknown]
  - Gait disturbance [Unknown]
  - Feeling abnormal [Unknown]

NARRATIVE: CASE EVENT DATE: 2016
